FAERS Safety Report 7488214-8 (Version None)
Quarter: 2011Q2

REPORT INFORMATION
  Report Type: 
  Country: None (occurrence: None)
  Receive Date: 20110518
  Receipt Date: 20110509
  Transmission Date: 20111010
  Serious: Yes (Hospitalization, Other)
  Sender: FDA-Public Use
  Company Number: CN-ASTRAZENECA-2011SE23348

PATIENT
  Age: 50 Year
  Sex: Male
  Weight: 45 kg

DRUGS (5)
  1. NEXIUM [Suspect]
     Indication: GASTRIC ULCER
     Route: 048
     Dates: start: 20100601
  2. NEXIUM [Suspect]
     Route: 048
     Dates: end: 20110509
  3. AMOXICILLIN [Concomitant]
     Indication: GASTRIC ULCER
     Route: 048
     Dates: start: 20100601
  4. PRILOSEC [Suspect]
     Route: 048
     Dates: start: 20100801, end: 20101001
  5. NEXIUM [Suspect]
     Route: 048
     Dates: start: 20101101

REACTIONS (2)
  - GASTRIC POLYPS [None]
  - GASTRIC POLYPECTOMY [None]
